FAERS Safety Report 8691163 (Version 3)
Quarter: 2012Q4

REPORT INFORMATION
  Report Type: Report from Study
  Country: GB (occurrence: GB)
  Receive Date: 20120730
  Receipt Date: 20121015
  Transmission Date: 20130627
  Serious: Yes (Hospitalization)
  Sender: FDA-Public Use
  Company Number: GB-NOVOPROD-356186

PATIENT
  Age: 80 Year
  Sex: Female
  Weight: 73 kg

DRUGS (3)
  1. LIRAGLUTIDE FLEXPEN [Suspect]
     Indication: TYPE 2 DIABETES MELLITUS
     Dosage: 1.8 mg, qd
     Route: 058
     Dates: start: 20120320
  2. LEVOBUPIVACAINE [Concomitant]
     Indication: BACK PAIN
     Dosage: 35 mg, UNK
     Dates: start: 20100603
  3. TRIAMCINOLONE [Concomitant]
     Indication: BACK PAIN
     Dosage: 40 mg, UNK
     Dates: start: 20100603

REACTIONS (1)
  - Oesophageal candidiasis [Not Recovered/Not Resolved]
